FAERS Safety Report 13553324 (Version 1)
Quarter: 2017Q2

REPORT INFORMATION
  Report Type: Spontaneous
  Country: FR (occurrence: FR)
  Receive Date: 20170517
  Receipt Date: 20170517
  Transmission Date: 20170830
  Serious: Yes (Hospitalization)
  Sender: FDA-Public Use
  Company Number: FR-ROCHE-1934850

PATIENT
  Age: 29 Year
  Sex: Male

DRUGS (14)
  1. CORTANCYL [Concomitant]
     Active Substance: PREDNISONE
     Route: 065
     Dates: start: 20170223
  2. TOCO 500 [Concomitant]
     Active Substance: .ALPHA.-TOCOPHEROL
  3. INEXIUM [Concomitant]
     Active Substance: ESOMEPRAZOLE
  4. CREON [Concomitant]
     Active Substance: PANCRELIPASE AMYLASE\PANCRELIPASE LIPASE\PANCRELIPASE PROTEASE
  5. CERTICAN [Suspect]
     Active Substance: EVEROLIMUS
     Indication: LUNG TRANSPLANT
     Route: 048
     Dates: start: 20170223, end: 20170424
  6. BACTRIM [Suspect]
     Active Substance: SULFAMETHOXAZOLE\TRIMETHOPRIM
     Indication: ANTIFUNGAL PROPHYLAXIS
     Route: 048
     Dates: end: 20170424
  7. FOSAMAX [Concomitant]
     Active Substance: ALENDRONATE SODIUM
  8. NOVORAPID [Concomitant]
     Active Substance: INSULIN ASPART
  9. TRIATEC (FRANCE) [Concomitant]
     Active Substance: RAMIPRIL
  10. CALTRATE [Concomitant]
     Active Substance: CALCIUM CARBONATE
  11. ISOPHANE INSULIN [Concomitant]
     Active Substance: INSULIN NOS
  12. CELLCEPT [Suspect]
     Active Substance: MYCOPHENOLATE MOFETIL\MYCOPHENOLATE MOFETIL HYDROCHLORIDE
     Indication: LUNG TRANSPLANT
     Route: 048
     Dates: start: 20170223, end: 20170424
  13. PROGRAF [Concomitant]
     Active Substance: TACROLIMUS\TACROLIMUS ANHYDROUS
     Route: 065
     Dates: start: 20170223
  14. VITAMIN D3 [Concomitant]
     Active Substance: CHOLECALCIFEROL

REACTIONS (2)
  - Acute kidney injury [Recovering/Resolving]
  - Agranulocytosis [Recovered/Resolved]

NARRATIVE: CASE EVENT DATE: 20170424
